FAERS Safety Report 4988096-X (Version None)
Quarter: 2006Q2

REPORT INFORMATION
  Report Type: 
  Country: None (occurrence: None)
  Receive Date: 20060501
  Receipt Date: 20050214
  Transmission Date: 20061013
  Serious: Yes (Hospitalization, Disabling)
  Sender: FDA-Public Use
  Company Number: DE-MERCK-0506DEU00025

PATIENT
  Age: 63 Year
  Sex: Male
  Weight: 130 kg

DRUGS (8)
  1. VIOXX [Suspect]
     Indication: ARTHRALGIA
     Route: 048
     Dates: start: 19990101, end: 20030817
  2. VIOXX [Suspect]
     Route: 048
     Dates: start: 20040101, end: 20040601
  3. VIOXX [Suspect]
     Route: 065
     Dates: start: 20031020, end: 20040128
  4. ASPIRIN [Concomitant]
     Route: 065
  5. PRAVASTATIN SODIUM [Concomitant]
     Route: 065
  6. ZINC ASPARTATE [Concomitant]
     Route: 065
     Dates: start: 20020128
  7. VALDECOXIB [Concomitant]
     Route: 065
     Dates: start: 20030818, end: 20031019
  8. CELECOXIB [Concomitant]
     Route: 065
     Dates: start: 20040129

REACTIONS (11)
  - ARTERIOSCLEROSIS CORONARY ARTERY [None]
  - ATRIAL FIBRILLATION [None]
  - CARDIAC FAILURE [None]
  - CORONARY ARTERY DISEASE [None]
  - CORONARY ARTERY STENOSIS [None]
  - DIABETES MELLITUS [None]
  - DRUG INEFFECTIVE [None]
  - FOOT FRACTURE [None]
  - HYPERTENSION [None]
  - OSTEOARTHRITIS [None]
  - VENTRICULAR FIBRILLATION [None]
